FAERS Safety Report 9919350 (Version 2)
Quarter: 2014Q1

REPORT INFORMATION
  Report Type: Spontaneous
  Country: US (occurrence: US)
  Receive Date: 20140224
  Receipt Date: 20140326
  Transmission Date: 20141002
  Serious: Yes (Congenital Anomaly, Other)
  Sender: FDA-Public Use
  Company Number: US-PFIZER INC-2014049383

PATIENT
  Sex: Female

DRUGS (8)
  1. ZOLOFT [Suspect]
     Dosage: UNK
     Route: 064
     Dates: start: 20050127
  2. GLIPIZIDE [Concomitant]
     Dosage: UNK
     Route: 064
  3. TYLENOL [Concomitant]
     Dosage: UNK
     Route: 064
  4. METFORMIN [Concomitant]
     Dosage: UNK
     Route: 064
  5. PRENATAL VITAMINS [Concomitant]
     Dosage: UNK
     Route: 064
  6. GLYBURIDE [Concomitant]
     Dosage: UNK
     Route: 064
  7. AMBIEN [Concomitant]
     Dosage: UNK
     Route: 064
  8. SLIDING SCALE INSULIN [Concomitant]
     Dosage: UNK
     Route: 064

REACTIONS (11)
  - Maternal exposure during pregnancy [Unknown]
  - Laryngomalacia [Unknown]
  - Laryngeal stenosis [Unknown]
  - Tracheal stenosis [Unknown]
  - Patent ductus arteriosus [Unknown]
  - Developmental hip dysplasia [Unknown]
  - Congenital laryngeal stridor [Unknown]
  - Congenital scoliosis [Unknown]
  - Tracheitis [Unknown]
  - Developmental delay [Unknown]
  - Cardiac murmur [Unknown]
